FAERS Safety Report 26015053 (Version 2)
Quarter: 2025Q4

REPORT INFORMATION
  Report Type: Spontaneous
  Country: TR (occurrence: TR)
  Receive Date: 20251109
  Receipt Date: 20251109
  Transmission Date: 20260118
  Serious: Yes (Death)
  Sender: ESKAYEF PHARMACEUTICALS LIMITED
  Company Number: TR-SKF-000173

PATIENT
  Age: 19 Year
  Sex: Male
  Weight: 115 kg

DRUGS (1)
  1. PREGABALIN [Suspect]
     Active Substance: PREGABALIN
     Indication: Product used for unknown indication
     Dosage: 950 NG/ML OF PREGABALIN DURING THE PRELIMINARY EXAMINATION, 660 NG/ML IN THE AUTOPSY
     Route: 065

REACTIONS (3)
  - Road traffic accident [Fatal]
  - Intentional product misuse [Fatal]
  - Sedation [Fatal]
